FAERS Safety Report 6051756-6 (Version None)
Quarter: 2009Q1

REPORT INFORMATION
  Report Type: 
  Country: None (occurrence: None)
  Receive Date: 20090121
  Receipt Date: 20090121
  Transmission Date: 20090719
  Serious: Yes (Other)
  Sender: FDA-Public Use
  Company Number: None

PATIENT
  Sex: Male

DRUGS (1)
  1. CHANTIX [Suspect]
     Indication: TOBACCO ABUSE
     Dosage: CURRENT- 1 MG TWICE DAILY PO
     Route: 048
     Dates: start: 20081209, end: 20081223

REACTIONS (2)
  - AGGRESSION [None]
  - VIOLENCE-RELATED SYMPTOM [None]
